FAERS Safety Report 12549961 (Version 7)
Quarter: 2020Q3

REPORT INFORMATION
  Report Type: Report from Study
  Country: US (occurrence: US)
  Receive Date: 20160712
  Receipt Date: 20161006
  Transmission Date: 20201104
  Serious: Yes (Life-Threatening, Hospitalization, Other)
  Sender: FDA-Public Use
  Company Number: US-JNJFOC-20160702892

PATIENT
  Age: 57 Year
  Sex: Female
  Weight: 74.1 kg

DRUGS (45)
  1. TRABECTEDIN [Suspect]
     Active Substance: TRABECTEDIN
     Route: 042
  2. REGLAN [Concomitant]
     Active Substance: METOCLOPRAMIDE HYDROCHLORIDE
     Indication: NAUSEA
     Route: 048
     Dates: start: 20160413
  3. SIMVASTATIN. [Concomitant]
     Active Substance: SIMVASTATIN
     Route: 048
  4. LISINOPRIL. [Concomitant]
     Active Substance: LISINOPRIL
     Route: 048
  5. POTASSIUM CHLORIDE. [Concomitant]
     Active Substance: POTASSIUM CHLORIDE
     Dosage: STERILE WATER 100 ML PREMIX
     Route: 042
  6. QUETIAPINE. [Concomitant]
     Active Substance: QUETIAPINE
     Route: 048
  7. VILAZODONE [Concomitant]
     Active Substance: VILAZODONE
     Route: 048
  8. METOCLOPRAMIDE. [Concomitant]
     Active Substance: METOCLOPRAMIDE
     Dosage: AS NECESSARY
     Route: 048
  9. ZOLPIDEM [Concomitant]
     Active Substance: ZOLPIDEM TARTRATE
     Dosage: AS NECESSARY
     Route: 048
  10. LIDOCAINE AND PRILOCAINE [Concomitant]
     Active Substance: LIDOCAINE\PRILOCAINE
     Route: 061
     Dates: start: 20160413
  11. DEXAMETHASONE. [Concomitant]
     Active Substance: DEXAMETHASONE
     Dosage: CYCLE 2 DAY 1
     Route: 048
     Dates: start: 20160505, end: 20160505
  12. DEXAMETHASONE. [Concomitant]
     Active Substance: DEXAMETHASONE
     Dosage: CYCLE 4 DAY 1
     Route: 048
     Dates: start: 20160616, end: 20160616
  13. VANCOMYCIN [Concomitant]
     Active Substance: VANCOMYCIN
     Route: 042
  14. IBUPROFEN. [Concomitant]
     Active Substance: IBUPROFEN
     Dosage: AS NECESSARY
     Route: 048
  15. HYDROCHLOROTHIAZIDE. [Concomitant]
     Active Substance: HYDROCHLOROTHIAZIDE
     Indication: HYPERTENSION
     Route: 048
     Dates: start: 20070101
  16. NEULASTA [Concomitant]
     Active Substance: PEGFILGRASTIM
     Route: 058
  17. LEVOTHYROXINE. [Concomitant]
     Active Substance: LEVOTHYROXINE
     Indication: HYPOTHYROIDISM
     Route: 048
  18. ACETAMINOPHEN. [Concomitant]
     Active Substance: ACETAMINOPHEN
     Dosage: AS NECESSARY
     Route: 048
  19. ENOXAPARIN [Concomitant]
     Active Substance: ENOXAPARIN
     Dosage: AS NECESSARY
     Route: 058
  20. DEXAMETHASONE. [Concomitant]
     Active Substance: DEXAMETHASONE
     Dosage: CYCLE 1 DAY 1
     Route: 048
     Dates: start: 20160414, end: 20160414
  21. LORAZEPAM. [Concomitant]
     Active Substance: LORAZEPAM
     Route: 048
     Dates: start: 20151216
  22. SEROQUEL [Concomitant]
     Active Substance: QUETIAPINE FUMARATE
     Route: 048
  23. VITAMIN B6 [Concomitant]
     Active Substance: PYRIDOXINE HYDROCHLORIDE
     Route: 048
  24. K?DUR [Concomitant]
     Active Substance: POTASSIUM CHLORIDE
     Route: 048
     Dates: start: 20160615
  25. VITAMIN D3 [Concomitant]
     Active Substance: CHOLECALCIFEROL
     Route: 048
  26. GAVISCON [Concomitant]
     Active Substance: ALUMINUM HYDROXIDE\MAGNESIUM CARBONATE
     Route: 048
  27. ADVIL [Concomitant]
     Active Substance: IBUPROFEN
     Route: 048
  28. SODIUM CHLORIDE. [Concomitant]
     Active Substance: SODIUM CHLORIDE
     Route: 048
  29. ALUMINIUM W/MAGNESIUM HYDROXIDE/SIMETICONE [Concomitant]
     Dosage: AS NECESSARY
     Route: 048
  30. TRABECTEDIN [Suspect]
     Active Substance: TRABECTEDIN
     Indication: OVARIAN CANCER RECURRENT
     Route: 042
     Dates: start: 20160414, end: 20160712
  31. NEXIUM [Concomitant]
     Active Substance: ESOMEPRAZOLE MAGNESIUM
     Indication: GASTROOESOPHAGEAL REFLUX DISEASE
     Route: 048
  32. DOXIL [Suspect]
     Active Substance: DOXORUBICIN HYDROCHLORIDE
     Indication: OVARIAN CANCER RECURRENT
     Route: 042
     Dates: start: 20160414, end: 20160712
  33. MAGNESIUM GLUCONATE [Concomitant]
     Active Substance: MAGNESIUM GLUCONATE
     Route: 048
     Dates: start: 20160615
  34. DEXAMETHASONE. [Concomitant]
     Active Substance: DEXAMETHASONE
     Dosage: CYCLE 3; DAY 1
     Route: 048
     Dates: start: 20160526, end: 20160526
  35. LORAZEPAM. [Concomitant]
     Active Substance: LORAZEPAM
     Dosage: AS NECESSARY
     Route: 048
  36. ZANTAC [Concomitant]
     Active Substance: RANITIDINE HYDROCHLORIDE
     Route: 048
  37. HYDROCHLOROTHIAZIDE. [Concomitant]
     Active Substance: HYDROCHLOROTHIAZIDE
     Route: 048
  38. SODIUM CHLORIDE. [Concomitant]
     Active Substance: SODIUM CHLORIDE
     Dosage: 0.9%
     Route: 042
  39. ALBUTEROL. [Concomitant]
     Active Substance: ALBUTEROL
     Dosage: ALBUTEROL 2.5 MG/ 3 ML NEBULIZER SOLUTION
     Route: 065
  40. FAMOTIDINE. [Concomitant]
     Active Substance: FAMOTIDINE
     Route: 048
  41. MEROPENEM. [Concomitant]
     Active Substance: MEROPENEM
     Route: 042
  42. DOXIL [Suspect]
     Active Substance: DOXORUBICIN HYDROCHLORIDE
     Route: 042
  43. VIIBRYD [Concomitant]
     Active Substance: VILAZODONE HYDROCHLORIDE
     Route: 048
  44. AMLODIPINE [Concomitant]
     Active Substance: AMLODIPINE BESYLATE
     Route: 048
  45. FILGRASTIM [Concomitant]
     Active Substance: FILGRASTIM
     Route: 058

REACTIONS (5)
  - Hypokalaemia [Recovered/Resolved]
  - Pleural effusion [Recovering/Resolving]
  - Hyponatraemia [Recovered/Resolved]
  - Acute respiratory failure [Recovered/Resolved]
  - Ejection fraction decreased [Recovered/Resolved]

NARRATIVE: CASE EVENT DATE: 20160701
